FAERS Safety Report 5278092-X (Version None)
Quarter: 2007Q1

REPORT INFORMATION
  Report Type: 
  Country: None (occurrence: None)
  Receive Date: 20061213
  Receipt Date: 20051027
  Transmission Date: 20070707
  Serious: No
  Sender: FDA-Public Use
  Company Number: 2005UW16304

PATIENT
  Age: 50 Year
  Sex: Female

DRUGS (6)
  1. SEROQUEL [Suspect]
     Dosage: 400 MG QD PO
     Route: 048
     Dates: start: 20040701
  2. NEURONTIN [Concomitant]
  3. CLONOPIN [Concomitant]
  4. AMBIEN [Concomitant]
  5. BUSPAR [Concomitant]
  6. ZOLOFT [Concomitant]

REACTIONS (2)
  - BLOOD CHOLESTEROL INCREASED [None]
  - BLOOD TRIGLYCERIDES INCREASED [None]
